FAERS Safety Report 6302253-1 (Version None)
Quarter: 2009Q3

REPORT INFORMATION
  Report Type: 
  Country: None (occurrence: None)
  Receive Date: 20090810
  Receipt Date: 20070607
  Transmission Date: 20100115
  Serious: Yes (Other)
  Sender: FDA-Public Use
  Company Number: US-ASTRAZENECA-2006UW11936

PATIENT
  Age: 17036 Day
  Sex: Female
  Weight: 79.4 kg

DRUGS (14)
  1. SEROQUEL [Suspect]
     Indication: SCHIZOPHRENIA
     Dosage: 100-800 MG
     Route: 048
     Dates: start: 20040713
  2. VISTARIL [Concomitant]
     Dosage: 25-50 MG
     Dates: start: 20050323
  3. ABILIFY [Concomitant]
     Dates: start: 20070816
  4. TRAZODONE HCL [Concomitant]
     Dates: start: 20070827
  5. LEXAPRO [Concomitant]
     Dates: start: 20050328
  6. DEPAKOTE ER [Concomitant]
     Dosage: 250-500 MG
     Dates: start: 20040917
  7. GABAPENTIN [Concomitant]
     Dates: start: 20050328
  8. AMITRIPTYLINE [Concomitant]
     Dosage: 25-50 MG
     Dates: start: 20040819
  9. PROTONIX [Concomitant]
     Route: 048
     Dates: start: 20060112
  10. REGLAN [Concomitant]
     Dosage: 5-10 MG
     Dates: start: 20050206
  11. BENADRYL [Concomitant]
     Dates: start: 20050206
  12. PEPCID [Concomitant]
     Dates: start: 20050206
  13. GLUCOPHAGE [Concomitant]
     Route: 048
     Dates: start: 20040713
  14. SKELAXIN [Concomitant]
     Indication: MUSCLE SPASMS
     Route: 048
     Dates: start: 20040713

REACTIONS (6)
  - DIABETES MELLITUS [None]
  - DIABETES MELLITUS INADEQUATE CONTROL [None]
  - DIABETIC KETOACIDOSIS [None]
  - DIABETIC NEUROPATHY [None]
  - GLYCOSYLATED HAEMOGLOBIN INCREASED [None]
  - TYPE 2 DIABETES MELLITUS [None]
